FAERS Safety Report 17197703 (Version 1)
Quarter: 2019Q4

REPORT INFORMATION
  Report Type: Spontaneous
  Country: US (occurrence: US)
  Receive Date: 20191224
  Receipt Date: 20191224
  Transmission Date: 20200122
  Serious: No
  Sender: FDA-Public Use
  Company Number: US-B.I. PHARMACEUTICALS,INC./RIDGEFIELD-2019-BI-119656

PATIENT
  Sex: Female

DRUGS (4)
  1. CATAPRES [Suspect]
     Active Substance: CLONIDINE HYDROCHLORIDE
     Indication: PRODUCT USED FOR UNKNOWN INDICATION
     Route: 065
  2. PROCARDIA [Suspect]
     Active Substance: NIFEDIPINE
     Indication: HYPERTENSION
     Dosage: FORM OF ADMINISTRATION: MODIFIED RELEASE TABLET.
     Route: 048
  3. REGLAN [Concomitant]
     Active Substance: METOCLOPRAMIDE HYDROCHLORIDE
     Route: 065
  4. REGLAN [Concomitant]
     Active Substance: METOCLOPRAMIDE HYDROCHLORIDE
     Indication: GASTROOESOPHAGEAL REFLUX DISEASE
     Dosage: DOSE: THE DOSE IS 1/2 TO 1 TABLET BEFORE MEALS AND EVERY NIGHT AT BEDTIME.
     Route: 065

REACTIONS (1)
  - Drug ineffective [Recovered/Resolved]
